FAERS Safety Report 5309950-5 (Version None)
Quarter: 2007Q2

REPORT INFORMATION
  Report Type: 
  Country: None (occurrence: None)
  Receive Date: 20070427
  Receipt Date: 20070418
  Transmission Date: 20071010
  Serious: Yes (Disabling)
  Sender: FDA-Public Use
  Company Number: 1998UW47957

PATIENT
  Age: 79 Year
  Sex: Female

DRUGS (21)
  1. SEROQUEL [Suspect]
     Indication: DEMENTIA
     Route: 048
     Dates: start: 19980623, end: 19980625
  2. SEROQUEL [Suspect]
     Route: 048
     Dates: start: 19980626, end: 19980627
  3. SEROQUEL [Suspect]
     Route: 048
     Dates: start: 19980628, end: 19980629
  4. SEROQUEL [Suspect]
     Route: 048
     Dates: start: 19980630, end: 19980701
  5. SEROQUEL [Suspect]
     Route: 048
     Dates: start: 19980702, end: 19980717
  6. ACETAMINOPHEN [Concomitant]
     Route: 054
  7. AMITRIPTYLINE HCL [Concomitant]
     Indication: DEMENTIA
     Route: 048
     Dates: start: 19980616, end: 19980623
  8. AMOXICILLIN [Concomitant]
     Route: 048
  9. CIPROFLOXACIN [Concomitant]
  10. CLOTRIMAZOLE [Concomitant]
     Dosage: 1 PERCENT
     Route: 061
  11. ESTROGENS CONJUGATED [Concomitant]
     Route: 048
     Dates: start: 19980616
  12. CYANOCOBALAMIN [Concomitant]
     Indication: ANAEMIA
     Route: 030
     Dates: start: 19980618
  13. DIMENHYDRINATE [Concomitant]
     Route: 042
     Dates: start: 19980623, end: 19980623
  14. HALOPERIDOL [Concomitant]
     Dates: start: 19980621, end: 19980623
  15. HYDROCORTISONE [Concomitant]
     Dosage: 1 PERCENT
  16. LEVOTHYROXINE SODIUM [Concomitant]
     Route: 048
     Dates: start: 19980617
  17. POTASSIUM CHLORIDE [Concomitant]
     Dosage: 30 MILLEQUIVALANTS
     Route: 042
  18. PROCHLORPERAZINE [Concomitant]
     Route: 030
  19. RISPERDAL [Concomitant]
     Route: 048
     Dates: start: 19980616, end: 19980617
  20. RISPERDAL [Concomitant]
     Route: 048
     Dates: start: 19980617, end: 19980623
  21. TRIAMCINOLONE [Concomitant]

REACTIONS (1)
  - THROMBOCYTOPENIA [None]
